FAERS Safety Report 6837732-1 (Version None)
Quarter: 2010Q3

REPORT INFORMATION
  Report Type: 
  Country: None (occurrence: None)
  Receive Date: 20100713
  Receipt Date: 20070522
  Transmission Date: 20110219
  Serious: No
  Sender: FDA-Public Use
  Company Number: US-PFIZER INC-2007041549

PATIENT
  Sex: Female
  Weight: 63.5 kg

DRUGS (8)
  1. CHANTIX [Suspect]
     Indication: SMOKING CESSATION THERAPY
     Dates: start: 20070401
  2. CLARITIN [Concomitant]
  3. MONTELUKAST SODIUM [Concomitant]
  4. PROVENTIL GENTLEHALER [Concomitant]
  5. TRICOR [Concomitant]
  6. RANITIDINE [Concomitant]
     Indication: EMPHYSEMA
  7. FLEXERIL [Concomitant]
     Indication: INJURY
  8. TRAMADOL [Concomitant]
     Indication: INJURY

REACTIONS (4)
  - DRUG INTOLERANCE [None]
  - TREMOR [None]
  - VERTIGO [None]
  - VOMITING [None]
